FAERS Safety Report 5326422-2 (Version None)
Quarter: 2007Q2

REPORT INFORMATION
  Report Type: 
  Country: None (occurrence: None)
  Receive Date: 20070516
  Receipt Date: 20070326
  Transmission Date: 20071010
  Serious: Yes (Hospitalization)
  Sender: FDA-Public Use
  Company Number: DK-MERCK-0703DNK00006

PATIENT
  Age: 86 Year
  Sex: Male

DRUGS (2)
  1. COZAAR [Suspect]
     Indication: HYPERTENSION
     Route: 048
     Dates: start: 20050101, end: 20050401
  2. ASPIRIN [Concomitant]
     Route: 048

REACTIONS (8)
  - DEHYDRATION [None]
  - ERYTHEMA MULTIFORME [None]
  - MALAISE [None]
  - ORAL HERPES [None]
  - ORAL INTAKE REDUCED [None]
  - RENAL IMPAIRMENT [None]
  - STEVENS-JOHNSON SYNDROME [None]
  - STOMATITIS [None]
